FAERS Safety Report 6686367-2 (Version None)
Quarter: 2010Q2

REPORT INFORMATION
  Report Type: 
  Country: None (occurrence: None)
  Receive Date: 20100419
  Receipt Date: 20100412
  Transmission Date: 20101027
  Serious: Yes (Death)
  Sender: FDA-Public Use
  Company Number: US-GILEAD-2010-0028480

PATIENT
  Sex: Male

DRUGS (20)
  1. LETAIRIS [Suspect]
     Indication: PULMONARY ARTERIAL HYPERTENSION
     Route: 048
     Dates: start: 20090530, end: 20100320
  2. ASPIRIN [Concomitant]
  3. TOPROL-XL [Concomitant]
  4. ATACAND [Concomitant]
  5. VYTORIN [Concomitant]
  6. ANTARA (MICRONIZED) [Concomitant]
  7. DIGOXIN [Concomitant]
  8. PLAVIX [Concomitant]
  9. PRANDIN [Concomitant]
  10. NAMENDA [Concomitant]
  11. JANUVIA [Concomitant]
  12. BONIVA [Concomitant]
  13. TRAZODONE [Concomitant]
  14. NITROGLYCERIN [Concomitant]
  15. MECLIZINE [Concomitant]
  16. ULTRAM [Concomitant]
  17. MIRALAX [Concomitant]
  18. FISH OIL [Concomitant]
  19. VITAMIN D [Concomitant]
  20. PROVENTIL [Concomitant]

REACTIONS (1)
  - DEATH [None]
